FAERS Safety Report 12554720 (Version 3)
Quarter: 2018Q2

REPORT INFORMATION
  Report Type: Spontaneous
  Country: US (occurrence: US)
  Receive Date: 20160713
  Receipt Date: 20180406
  Transmission Date: 20180711
  Serious: Yes (Life-Threatening)
  Sender: FDA-Public Use
  Company Number: GXBR2016US001846

PATIENT
  Age: 67 Year
  Sex: Male
  Weight: 108 kg

DRUGS (5)
  1. ENOXAPARIN SODIUM. [Suspect]
     Active Substance: ENOXAPARIN SODIUM
     Indication: THROMBOSIS PROPHYLAXIS
     Dosage: UNK UNK, Q12H
     Route: 058
  2. BAYER ASPIRIN [Suspect]
     Active Substance: ASPIRIN
     Indication: PERIPHERAL SWELLING
     Dosage: 1 DF, QID (2 PILLS IN THE MORNING AND 2 PILLS AT NIGHT)
     Route: 065
  3. WARFARIN [Interacting]
     Active Substance: WARFARIN
     Indication: THROMBOSIS
     Dosage: UNK (2 PILLLS THE FIRST DAY AND ONE PILL A DAY THENCE FORTH)
     Route: 065
  4. AMLODIPINE [Concomitant]
     Active Substance: AMLODIPINE BESYLATE
     Indication: BLOOD PRESSURE MEASUREMENT
     Dosage: UNK DF, UNK
     Route: 065
  5. ENOXAPARIN SODIUM. [Interacting]
     Active Substance: ENOXAPARIN SODIUM
     Indication: HIP ARTHROPLASTY
     Dosage: UNK UNK, Q12H
     Route: 058
     Dates: start: 20160419

REACTIONS (6)
  - Hypersensitivity [Recovered/Resolved]
  - Mouth haemorrhage [Recovered/Resolved]
  - Injection site bruising [Recovered/Resolved]
  - Drug interaction [Unknown]
  - Epistaxis [Recovered/Resolved]
  - Injection site pain [Recovered/Resolved]

NARRATIVE: CASE EVENT DATE: 20160419
